FAERS Safety Report 8469591-8 (Version None)
Quarter: 2012Q2

REPORT INFORMATION
  Report Type: 
  Country: None (occurrence: None)
  Receive Date: 20120626
  Receipt Date: 20120620
  Transmission Date: 20120825
  Serious: Yes (Hospitalization)
  Sender: FDA-Public Use
  Company Number: US-ABBOTT-11P-163-0880168-00

PATIENT
  Sex: Female
  Weight: 56.75 kg

DRUGS (16)
  1. ZEGERID [Concomitant]
     Indication: DYSPEPSIA
  2. LIBRAX [Concomitant]
     Indication: ABDOMINAL PAIN
  3. CONCERTA [Concomitant]
     Indication: PRODUCT USED FOR UNKNOWN INDICATION
  4. HUMIRA [Suspect]
     Dates: start: 20111117, end: 20111129
  5. ASACOL [Concomitant]
     Indication: CROHN'S DISEASE
  6. SEROQUEL [Concomitant]
     Indication: PRODUCT USED FOR UNKNOWN INDICATION
  7. TRAZODONE HCL [Concomitant]
     Indication: PRODUCT USED FOR UNKNOWN INDICATION
  8. CENESTIN [Concomitant]
     Indication: PRODUCT USED FOR UNKNOWN INDICATION
  9. ENTOCORT EC [Concomitant]
     Indication: CROHN'S DISEASE
  10. IMURAN [Concomitant]
     Indication: PRODUCT USED FOR UNKNOWN INDICATION
  11. HUMIRA [Suspect]
     Dates: start: 20111103, end: 20111103
  12. TEGRETOL [Concomitant]
     Indication: PRODUCT USED FOR UNKNOWN INDICATION
  13. HUMIRA [Suspect]
     Indication: CROHN'S DISEASE
     Dates: start: 20111020, end: 20111020
  14. LIALDA [Concomitant]
     Indication: CROHN'S DISEASE
  15. MIRALAX [Concomitant]
     Indication: PRODUCT USED FOR UNKNOWN INDICATION
  16. LORAZEPAM [Concomitant]
     Indication: PRODUCT USED FOR UNKNOWN INDICATION

REACTIONS (8)
  - HYPERSOMNIA [None]
  - HERPES ZOSTER DISSEMINATED [None]
  - ABDOMINAL PAIN [None]
  - RASH GENERALISED [None]
  - RASH [None]
  - ASTHENIA [None]
  - RASH PUSTULAR [None]
  - DERMATOSIS [None]
